FAERS Safety Report 10514588 (Version 2)
Quarter: 2014Q4

REPORT INFORMATION
  Report Type: Spontaneous
  Country: JP (occurrence: JP)
  Receive Date: 20141013
  Receipt Date: 20141029
  Transmission Date: 20150528
  Serious: Yes (Life-Threatening, Disabling)
  Sender: FDA-Public Use
  Company Number: JP-SA-2014SA139297

PATIENT
  Age: 68 Year
  Sex: Male
  Weight: 65 kg

DRUGS (9)
  1. AVASTIN [Suspect]
     Active Substance: BEVACIZUMAB
     Indication: COLON CANCER
     Route: 041
     Dates: start: 20110829, end: 20110829
  2. AVASTIN [Suspect]
     Active Substance: BEVACIZUMAB
     Indication: COLON CANCER
     Route: 041
     Dates: start: 20110804, end: 20110804
  3. FLUOROURACIL. [Concomitant]
     Active Substance: FLUOROURACIL
     Dosage: 700 MG/KG (397.5 MG/M2) THEN 4250 MG/KG (2413.4 MG/M2/D1-2) AS CONTINUOUS INFUSION, TOTAL 4 CYCLES
     Dates: start: 20110627, end: 20110829
  4. MAGNESIUM OXIDE. [Concomitant]
     Active Substance: MAGNESIUM OXIDE
     Dosage: FORM: POWDER
     Dates: start: 20110627, end: 20110829
  5. ELPLAT [Suspect]
     Active Substance: OXALIPLATIN
     Indication: COLON CANCER
     Dosage: INFUSION SOLUTION
     Route: 041
     Dates: start: 20110627, end: 20110829
  6. MEROPEN [Concomitant]
     Active Substance: MEROPENEM
     Dates: start: 20110902, end: 20110915
  7. LEUCOVORIN [Concomitant]
     Active Substance: LEUCOVORIN
  8. GRANISETRON HYDROCHLORIDE. [Concomitant]
     Active Substance: GRANISETRON HYDROCHLORIDE
     Dates: start: 20110627, end: 20110829
  9. AMARYL [Concomitant]
     Active Substance: GLIMEPIRIDE
     Dates: start: 20110627

REACTIONS (3)
  - Large intestine perforation [Recovering/Resolving]
  - Wound dehiscence [Unknown]
  - Cerebral infarction [Recovered/Resolved with Sequelae]

NARRATIVE: CASE EVENT DATE: 20110902
